FAERS Safety Report 17551922 (Version 1)
Quarter: 2020Q1

REPORT INFORMATION
  Report Type: Spontaneous
  Country: US (occurrence: US)
  Receive Date: 20200317
  Receipt Date: 20200317
  Transmission Date: 20200409
  Serious: No
  Sender: FDA-Public Use
  Company Number: US-JAZZ-2020-US-000970

PATIENT
  Age: 58 Year
  Sex: Female

DRUGS (8)
  1. ESCITALOPRAM [Concomitant]
     Active Substance: ESCITALOPRAM OXALATE
  2. XYREM [Suspect]
     Active Substance: SODIUM OXYBATE
     Dosage: 6.25 GRAM
     Route: 048
     Dates: start: 20191208
  3. BUPROPION. [Concomitant]
     Active Substance: BUPROPION
  4. VITAMIN D [COLECALCIFEROL] [Concomitant]
     Active Substance: CHOLECALCIFEROL
  5. METFORMIN [Concomitant]
     Active Substance: METFORMIN HYDROCHLORIDE
  6. SIMVASTATIN. [Concomitant]
     Active Substance: SIMVASTATIN
  7. PIOGLITAZONE. [Concomitant]
     Active Substance: PIOGLITAZONE
  8. XYREM [Suspect]
     Active Substance: SODIUM OXYBATE
     Indication: NARCOLEPSY
     Dosage: 3.2 GRAM, BID
     Route: 048

REACTIONS (3)
  - Fatigue [Recovering/Resolving]
  - Extra dose administered [Unknown]
  - Depressed level of consciousness [Recovering/Resolving]

NARRATIVE: CASE EVENT DATE: 20191208
